FAERS Safety Report 24375301 (Version 1)
Quarter: 2024Q3

REPORT INFORMATION
  Report Type: Spontaneous
  Country: FR (occurrence: FR)
  Receive Date: 20240928
  Receipt Date: 20240928
  Transmission Date: 20241017
  Serious: Yes (Other)
  Sender: CELLTRION
  Company Number: None

PATIENT

DRUGS (6)
  1. RITUXIMAB [Suspect]
     Active Substance: RITUXIMAB
     Indication: Muscular weakness
     Dosage: UNK
     Route: 042
     Dates: start: 20220414, end: 20221011
  2. TENOFOVIR DISOPROXIL SUCCINATE [Suspect]
     Active Substance: TENOFOVIR DISOPROXIL SUCCINATE
     Indication: Prophylaxis
     Dosage: 245 MG, QD
     Route: 048
     Dates: start: 20220324
  3. AZATHIOPRINE [Suspect]
     Active Substance: AZATHIOPRINE
     Indication: Muscular weakness
     Dosage: 4 DF, QD
     Route: 048
     Dates: start: 202106
  4. MESTINON [Suspect]
     Active Substance: PYRIDOSTIGMINE BROMIDE
     Indication: Muscular weakness
     Dosage: 3 DF, QD
     Route: 048
     Dates: start: 202106
  5. PREDNISONE [Suspect]
     Active Substance: PREDNISONE
     Indication: Muscular weakness
     Dosage: 7 MG, QD
     Route: 048
     Dates: start: 202106
  6. CANDESARTAN CILEXETIL [Concomitant]
     Active Substance: CANDESARTAN CILEXETIL
     Dosage: 16 MG, QD
     Route: 048
     Dates: start: 202104, end: 20230115

REACTIONS (3)
  - Abortion spontaneous [Recovered/Resolved]
  - Maternal exposure timing unspecified [Recovered/Resolved]
  - Intentional product use issue [Unknown]

NARRATIVE: CASE EVENT DATE: 20230127
